FAERS Safety Report 9380366 (Version 1)
Quarter: 2013Q3

REPORT INFORMATION
  Report Type: Spontaneous
  Country: FR (occurrence: FR)
  Receive Date: 20130702
  Receipt Date: 20130702
  Transmission Date: 20140515
  Serious: Yes (Hospitalization)
  Sender: FDA-Public Use
  Company Number: FR-TEVA-360418ISR

PATIENT
  Age: 83 Year
  Sex: Male

DRUGS (11)
  1. G-CSF (TEVAGRASTIM) [Suspect]
     Indication: CHRONIC LYMPHOCYTIC LEUKAEMIA
     Route: 058
     Dates: start: 20120212, end: 20120221
  2. G-CSF (TEVAGRASTIM) [Suspect]
     Route: 058
     Dates: start: 20120311, end: 20120322
  3. G-CSF (TEVAGRASTIM) [Suspect]
     Route: 058
     Dates: start: 20120408, end: 20120419
  4. MABTHERA [Suspect]
     Indication: NEOPLASM PROGRESSION
     Dosage: 690 MILLIGRAM DAILY;
     Route: 042
     Dates: start: 20111122
  5. LEVACT [Suspect]
     Indication: NEOPLASM PROGRESSION
     Dosage: 80 MILLIGRAM DAILY;
     Route: 042
     Dates: start: 20111122
  6. TAREG 80MG [Concomitant]
     Dosage: .5 DOSAGE FORMS DAILY;
  7. ESIDREX 25MG [Concomitant]
     Dosage: .5 DOSAGE FORMS DAILY;
  8. NEURONTIN 100MG [Concomitant]
     Dosage: 3 DOSAGE FORMS DAILY;
  9. XATRAL LP 100MG [Concomitant]
     Dosage: 1 DOSAGE FORMS DAILY;
  10. ZELITREX 500MG [Concomitant]
     Dosage: 1 DOSAGE FORMS DAILY;
  11. BACTRIM 400MG [Concomitant]
     Dosage: 1 DOSAGE FORMS DAILY;

REACTIONS (2)
  - Squamous cell carcinoma [Recovered/Resolved with Sequelae]
  - Malignant melanoma [Recovered/Resolved with Sequelae]
